FAERS Safety Report 8507677-X (Version None)
Quarter: 2012Q3

REPORT INFORMATION
  Report Type: 
  Country: None (occurrence: None)
  Receive Date: 20120713
  Receipt Date: 20120625
  Transmission Date: 20120928
  Serious: No
  Sender: FDA-Public Use
  Company Number: US-ASTRAZENECA-2011SE41454

PATIENT
  Age: 62 Year
  Sex: Female
  Weight: 83.9 kg

DRUGS (51)
  1. NEXIUM [Suspect]
     Route: 048
  2. NEXIUM [Suspect]
     Route: 048
     Dates: start: 20100731
  3. ATENOLOL [Concomitant]
     Dosage: 50MG TK ONE T PO D
     Route: 048
     Dates: start: 20061130
  4. PRILOSEC [Concomitant]
     Indication: CHEST PAIN
  5. CELEXA [Concomitant]
     Indication: DEPRESSION
     Dates: start: 20050101
  6. CENESTIN [Concomitant]
     Dates: end: 20060101
  7. ASPIRIN [Concomitant]
     Indication: ANTICOAGULANT THERAPY
  8. NORVASC [Concomitant]
     Indication: BLOOD PRESSURE
  9. PAXIL [Concomitant]
  10. NITROGLYCERIN [Concomitant]
     Indication: OESOPHAGEAL SPASM
  11. NEXIUM [Suspect]
     Route: 048
  12. AVAPRO [Concomitant]
     Indication: CARDIAC DISORDER
     Dosage: 30 MG
  13. PRILOSEC [Concomitant]
     Dates: start: 20010324
  14. EFFEXOR XR [Concomitant]
     Dates: end: 20050101
  15. METAMUCIL-2 [Concomitant]
  16. UROMAR [Concomitant]
     Indication: BLADDER SPASM
  17. NEXIUM [Suspect]
     Indication: CHEST PAIN
     Route: 048
     Dates: start: 20010101
  18. ATENOLOL [Concomitant]
     Indication: CARDIAC DISORDER
  19. PRILOSEC [Concomitant]
     Dates: start: 20010724
  20. LEVOTHYROXINE SODIUM [Concomitant]
     Indication: HYPOTHYROIDISM
     Dosage: 80 TO 88 MCG
  21. CELEXA [Concomitant]
     Dates: start: 20100731
  22. ESTROPIPATE [Concomitant]
     Dosage: 1.5MG (1.25 MG) ,TK ONE T PO QD
     Route: 048
     Dates: start: 20061130
  23. NEXIUM [Suspect]
     Route: 048
     Dates: start: 20011218
  24. ATENOLOL [Concomitant]
     Dates: start: 20100731
  25. HYDROCHLOROTHIZIDE [Concomitant]
     Dates: start: 20100731
  26. PRILOSEC [Concomitant]
     Dates: start: 20010724
  27. DIOVAN [Concomitant]
     Indication: BLOOD PRESSURE
  28. PAXIL [Concomitant]
     Indication: DEPRESSION
     Dates: start: 20011218
  29. EFFEXOR XR [Concomitant]
     Indication: DEPRESSION
     Dates: start: 20011219
  30. PCE [Concomitant]
  31. NEXIUM [Suspect]
     Dosage: 1/DAY, TOOK 2/DAY FROM FEBRUARY 2006 TO DECEMBER 2006
     Route: 048
     Dates: start: 20010401
  32. PHENERGAN HCL [Concomitant]
  33. AVAPRO [Concomitant]
     Dates: start: 20100731
  34. HYDROCHLOROTHIZIDE [Concomitant]
     Indication: CARDIAC DISORDER
  35. ZOCOR [Concomitant]
     Indication: BLOOD CHOLESTEROL
  36. CELEXA [Concomitant]
     Dates: start: 20100731
  37. PREMARIN [Concomitant]
     Indication: HORMONE THERAPY
  38. BENTYL [Concomitant]
  39. NEXIUM [Suspect]
     Indication: GASTROOESOPHAGEAL REFLUX DISEASE
     Route: 048
     Dates: start: 20010101
  40. NEXIUM [Suspect]
     Dosage: 1/DAY, TOOK 2/DAY FROM FEBRUARY 2006 TO DECEMBER 2006
     Route: 048
     Dates: start: 20010401
  41. NEXIUM [Suspect]
     Route: 048
     Dates: start: 20011218
  42. PRILOSEC [Concomitant]
     Dates: start: 20010324
  43. ZOCOR [Concomitant]
     Dates: start: 20100731
  44. PLAVIX [Concomitant]
     Indication: CARDIAC DISORDER
     Dates: start: 20050101
  45. CEFZIL [Concomitant]
  46. NEXIUM [Suspect]
     Route: 048
     Dates: start: 20100731
  47. PRILOSEC [Concomitant]
     Indication: GASTROOESOPHAGEAL REFLUX DISEASE
  48. PLAVIX [Concomitant]
     Indication: PERIPHERAL VASCULAR DISORDER
     Dates: start: 20050101
  49. CELEXA [Concomitant]
     Indication: ANXIETY
     Dates: start: 20050101
  50. CENESTIN [Concomitant]
     Indication: HORMONE THERAPY
  51. FOSAMOX [Concomitant]
     Indication: OSTEOPOROSIS

REACTIONS (14)
  - ABDOMINAL PAIN [None]
  - PERIPHERAL VASCULAR DISORDER [None]
  - HYPOTHYROIDISM [None]
  - OSTEOPENIA [None]
  - BONE DENSITY DECREASED [None]
  - CHEST PAIN [None]
  - MUSCULOSKELETAL DISCOMFORT [None]
  - LIMB DISCOMFORT [None]
  - INFLUENZA [None]
  - OSTEOPOROSIS [None]
  - NECK PAIN [None]
  - FALL [None]
  - DEPRESSION [None]
  - ABDOMINAL PAIN LOWER [None]
